FAERS Safety Report 7407639-X (Version None)
Quarter: 2011Q2

REPORT INFORMATION
  Report Type: 
  Country: None (occurrence: None)
  Receive Date: 20110401
  Receipt Date: 20110318
  Transmission Date: 20111010
  Serious: Yes (Hospitalization)
  Sender: FDA-Public Use
  Company Number: 028380

PATIENT
  Sex: Female
  Weight: 61.2 kg

DRUGS (4)
  1. PREDNISONE [Concomitant]
  2. CIMZIA [Suspect]
     Indication: RHEUMATOID ARTHRITIS
     Dosage: (400 MG 1X/2 WEEKS SUBCUTANEOUS)
     Route: 058
     Dates: start: 20110211, end: 20110301
  3. PRENATAL VITAMINS /01549301/ [Concomitant]
  4. ASAPHEN [Concomitant]

REACTIONS (5)
  - DIZZINESS [None]
  - PALPITATIONS [None]
  - PRESYNCOPE [None]
  - DRUG EXPOSURE DURING PREGNANCY [None]
  - ARTHRALGIA [None]
